FAERS Safety Report 21446714 (Version 2)
Quarter: 2023Q1

REPORT INFORMATION
  Report Type: Spontaneous
  Country: US (occurrence: US)
  Receive Date: 20221012
  Receipt Date: 20230109
  Transmission Date: 20230418
  Serious: No
  Sender: FDA-Public Use
  Company Number: US-VIIV HEALTHCARE LIMITED-US2022AMR142052

PATIENT
  Age: 31 Year
  Sex: Female

DRUGS (2)
  1. RILPIVIRINE [Suspect]
     Active Substance: RILPIVIRINE
     Indication: Product used for unknown indication
     Dosage: UNK, 600/900 MG,  Z: EVERY 2 MONTHS
     Route: 065
     Dates: start: 20220607
  2. CABOTEGRAVIR [Suspect]
     Active Substance: CABOTEGRAVIR
     Indication: Product used for unknown indication
     Dosage: UNK, 600/900 MG,  Z: EVERY 2 MONTHS
     Route: 065
     Dates: start: 20220607

REACTIONS (2)
  - Exposure during pregnancy [Unknown]
  - Device expulsion [Unknown]
